FAERS Safety Report 7203792-1 (Version None)
Quarter: 2010Q4

REPORT INFORMATION
  Report Type: 
  Country: None (occurrence: None)
  Receive Date: 20101230
  Receipt Date: 20101227
  Transmission Date: 20110411
  Serious: Yes (Other)
  Sender: FDA-Public Use
  Company Number: PHHY2010TW88886

PATIENT
  Sex: Male

DRUGS (1)
  1. GLEEVEC [Suspect]
     Indication: GASTROINTESTINAL STROMAL TUMOUR
     Dosage: 100 MG
     Route: 048
     Dates: start: 20090701

REACTIONS (3)
  - BLOOD URINE [None]
  - HAEMATOCHEZIA [None]
  - VOMITING [None]
